FAERS Safety Report 11483429 (Version 2)
Quarter: 2015Q3

REPORT INFORMATION
  Report Type: Spontaneous
  Country: US (occurrence: US)
  Receive Date: 20150903
  Receipt Date: 20150903
  Transmission Date: 20151125
  Serious: No
  Sender: FDA-Public Use
  Company Number: US-ELI_LILLY_AND_COMPANY-US201204010015

PATIENT
  Age: 62 Year
  Sex: Female

DRUGS (2)
  1. CYMBALTA [Suspect]
     Active Substance: DULOXETINE HYDROCHLORIDE
     Indication: SPINAL PAIN
     Dosage: 30 MG, QD
  2. CYMBALTA [Suspect]
     Active Substance: DULOXETINE HYDROCHLORIDE
     Dosage: 60 MG, QD

REACTIONS (14)
  - Cold sweat [Unknown]
  - Abdominal discomfort [Unknown]
  - Flushing [Unknown]
  - Off label use [Recovered/Resolved]
  - Erythema [Unknown]
  - Feeling cold [Unknown]
  - Pain in extremity [Unknown]
  - Mass [Unknown]
  - Nausea [Recovered/Resolved]
  - Abnormal dreams [Unknown]
  - Drug ineffective [Recovered/Resolved]
  - Skin warm [Unknown]
  - Hyperhidrosis [Unknown]
  - Local swelling [Unknown]

NARRATIVE: CASE EVENT DATE: 20120421
